FAERS Safety Report 6313122-5 (Version None)
Quarter: 2009Q3

REPORT INFORMATION
  Report Type: 
  Country: None (occurrence: None)
  Receive Date: 20090818
  Receipt Date: 20090804
  Transmission Date: 20100115
  Serious: Yes (Other)
  Sender: FDA-Public Use
  Company Number: JP-PFIZER INC-2009251160

PATIENT
  Age: 61 Year

DRUGS (3)
  1. AZULFIDINE [Suspect]
     Dosage: 500 MG, 1X/DAY
     Route: 048
     Dates: start: 20090713, end: 20090725
  2. REBAMIPIDE [Concomitant]
     Route: 048
     Dates: start: 20090713, end: 20090725
  3. CELECOXIB [Concomitant]
     Dosage: UNK
     Route: 048
     Dates: start: 20090713, end: 20090725

REACTIONS (1)
  - DRUG HYPERSENSITIVITY [None]
